FAERS Safety Report 9441259 (Version 1)
Quarter: 2013Q3

REPORT INFORMATION
  Report Type: Spontaneous
  Country: US (occurrence: US)
  Receive Date: 20130805
  Receipt Date: 20130805
  Transmission Date: 20140515
  Serious: Yes (Other)
  Sender: FDA-Public Use
  Company Number: US-009507513-1308USA000959

PATIENT
  Age: 49 Year
  Sex: Female

DRUGS (2)
  1. SAPHRIS [Suspect]
     Indication: BIPOLAR DISORDER
     Dosage: 5 MG, QPM
     Route: 048
     Dates: start: 20110407
  2. SAPHRIS [Suspect]
     Dosage: 10 MG
     Route: 048

REACTIONS (4)
  - Dyspnoea [Unknown]
  - Underdose [Unknown]
  - Insomnia [Unknown]
  - Bladder pain [Unknown]
